FAERS Safety Report 10788634 (Version 1)
Quarter: 2015Q1

REPORT INFORMATION
  Report Type: Spontaneous
  Country: US (occurrence: None)
  Receive Date: 20150211
  Receipt Date: 20150211
  Transmission Date: 20150721
  Serious: Yes (Other)
  Sender: FDA-Public Use
  Company Number: None

PATIENT
  Age: 25 Year
  Sex: Female
  Weight: 65 kg

DRUGS (1)
  1. MIRENA [Suspect]
     Active Substance: LEVONORGESTREL

REACTIONS (7)
  - Lactation disorder [None]
  - Menstruation irregular [None]
  - Mood swings [None]
  - Pain [None]
  - Suppressed lactation [None]
  - Vaginal haemorrhage [None]
  - Breast atrophy [None]

NARRATIVE: CASE EVENT DATE: 20150210
